FAERS Safety Report 6644497-5 (Version None)
Quarter: 2010Q1

REPORT INFORMATION
  Report Type: 
  Country: None (occurrence: None)
  Receive Date: 20100322
  Receipt Date: 20100311
  Transmission Date: 20100710
  Serious: Yes (Other)
  Sender: FDA-Public Use
  Company Number: ZA-JNJFOC-20100302065

PATIENT
  Sex: Female
  Weight: 83 kg

DRUGS (3)
  1. REVELLEX [Suspect]
     Indication: ANKYLOSING SPONDYLITIS
     Dosage: PATIENT RECEIVED A TOTAL OF 8 INFUSIONS
     Route: 042
  2. METHOTREXATE [Concomitant]
     Indication: ANKYLOSING SPONDYLITIS
  3. CELEBREX [Concomitant]
     Indication: ANKYLOSING SPONDYLITIS

REACTIONS (1)
  - PULMONARY TUBERCULOSIS [None]
